FAERS Safety Report 16134222 (Version 3)
Quarter: 2019Q2

REPORT INFORMATION
  Report Type: Spontaneous
  Country: IT (occurrence: IT)
  Receive Date: 20190329
  Receipt Date: 20190514
  Transmission Date: 20190711
  Serious: Yes (Other)
  Sender: FDA-Public Use
  Company Number: IT-ELI_LILLY_AND_COMPANY-IT201903010880

PATIENT
  Age: 62 Year
  Sex: Female

DRUGS (4)
  1. FORSTEO 250UG/ML [Suspect]
     Active Substance: TERIPARATIDE
     Indication: OSTEOPOROSIS
     Dosage: UNK, UNKNOWN
     Route: 065
     Dates: start: 20181114
  2. DIBASE [Concomitant]
     Active Substance: CHOLECALCIFEROL
     Indication: PRODUCT USED FOR UNKNOWN INDICATION
  3. FORSTEO 250UG/ML [Suspect]
     Active Substance: TERIPARATIDE
     Dosage: UNK, UNKNOWN
     Route: 065
  4. FORSTEO 250UG/ML [Suspect]
     Active Substance: TERIPARATIDE
     Dosage: UNK, UNKNOWN
     Route: 065

REACTIONS (11)
  - Peripheral swelling [Unknown]
  - Gingival discomfort [Unknown]
  - Feeling hot [Unknown]
  - Pain in extremity [Unknown]
  - Gingival pain [Unknown]
  - Limb injury [Unknown]
  - Gingival swelling [Unknown]
  - Limb discomfort [Unknown]
  - Arthralgia [Unknown]
  - Pain [Unknown]
  - Gingivitis [Unknown]

NARRATIVE: CASE EVENT DATE: 20190414
